FAERS Safety Report 16707900 (Version 2)
Quarter: 2019Q4

REPORT INFORMATION
  Report Type: Report from Study
  Country: US (occurrence: US)
  Receive Date: 20190815
  Receipt Date: 20191111
  Transmission Date: 20200122
  Serious: No
  Sender: FDA-Public Use
  Company Number: PHEH2019US033508

PATIENT
  Sex: Female

DRUGS (1)
  1. ENTRESTO [Suspect]
     Active Substance: SACUBITRIL\VALSARTAN
     Indication: PRODUCT USED FOR UNKNOWN INDICATION
     Dosage: UNK
     Route: 048

REACTIONS (7)
  - Dyspnoea [Unknown]
  - Weight loss poor [Unknown]
  - Myalgia [Unknown]
  - Swelling [Unknown]
  - Fluid retention [Unknown]
  - Nausea [Unknown]
  - Drug ineffective [Unknown]
